FAERS Safety Report 5273567-1 (Version None)
Quarter: 2007Q1

REPORT INFORMATION
  Report Type: 
  Country: None (occurrence: None)
  Receive Date: 20070321
  Receipt Date: 20070321
  Transmission Date: 20070707
  Serious: Yes (Hospitalization)
  Sender: FDA-Public Use
  Company Number: None

PATIENT
  Age: 59 Year
  Sex: Male
  Weight: 122.5619 kg

DRUGS (2)
  1. OXYCODONE 5 MG [Suspect]
     Indication: ABDOMINAL PAIN
     Dosage: 10 MG Q4H PRN PO
     Route: 048
     Dates: start: 20070112, end: 20070320
  2. FENTANYL [Suspect]
     Indication: ABDOMINAL PAIN
     Dosage: 25 MCG/HR Q3DAYS TRANSDERMA
     Route: 062
     Dates: start: 20070228, end: 20070320

REACTIONS (3)
  - ABDOMINAL DISTENSION [None]
  - ASCITES [None]
  - MENTAL STATUS CHANGES [None]
